FAERS Safety Report 16542323 (Version 1)
Quarter: 2019Q3

REPORT INFORMATION
  Report Type: Spontaneous
  Country: DE (occurrence: DE)
  Receive Date: 20190708
  Receipt Date: 20190708
  Transmission Date: 20191004
  Serious: Yes (Hospitalization)
  Sender: FDA-Public Use
  Company Number: PHHY2019DE155303

PATIENT
  Age: 68 Year
  Sex: Male
  Weight: 70.5 kg

DRUGS (22)
  1. ENTYVIO [Suspect]
     Active Substance: VEDOLIZUMAB
     Indication: PRODUCT USED FOR UNKNOWN INDICATION
     Dosage: UNK (SCHEMA, INJEKTIONS-/INFUSIONSL?SUNG)
     Route: 042
  2. OPIUM TINCTURE [Concomitant]
     Active Substance: MORPHINE
     Indication: PRODUCT USED FOR UNKNOWN INDICATION
     Dosage: 30 GTT, QD (1-0-0-0, TROPFEN)
     Route: 048
  3. MAGNESIUM DIASPORAL [Concomitant]
     Active Substance: MAGNESIUM
     Indication: PRODUCT USED FOR UNKNOWN INDICATION
     Dosage: 2 MMOL, UNK (SCHEMA, INJEKTIONS-/INFUSIONSL?SUNG)
     Route: 051
  4. DEKRISTOL [Concomitant]
     Active Substance: CHOLECALCIFEROL
     Indication: PRODUCT USED FOR UNKNOWN INDICATION
     Dosage: 20000 IU, UNK (SCHEMA, KAPSELN)
     Route: 048
  5. BICANORM [Concomitant]
     Active Substance: SODIUM BICARBONATE
     Indication: PRODUCT USED FOR UNKNOWN INDICATION
     Dosage: 1 G, QID (1-1-1-1, TABLETTEN)
     Route: 048
  6. PLASTULEN EISEN [Concomitant]
     Indication: PRODUCT USED FOR UNKNOWN INDICATION
     Dosage: 55 MG, QD (1-0-0-0, KAPSELN)
     Route: 048
  7. LAMIVUDINE. [Concomitant]
     Active Substance: LAMIVUDINE
     Indication: PRODUCT USED FOR UNKNOWN INDICATION
     Dosage: 100 MG, QD (0-1-0-0, TABLETTEN)
     Route: 048
  8. STEROFUNDIN ISO [Concomitant]
     Indication: PRODUCT USED FOR UNKNOWN INDICATION
     Dosage: UNK UNK, QD (6.8|0.3|0.37|0.2|3.27|0.67 G / TAG, SCHEMA, INJEKTIONS-/INFUSIONSL?SUNG)
     Route: 051
  9. CALCITRAT [Concomitant]
     Indication: PRODUCT USED FOR UNKNOWN INDICATION
     Dosage: UNK UNK, TID (1-1-1-0, TABLETTEN)
     Route: 048
  10. MAGNETRANS FORTE [Concomitant]
     Active Substance: MAGNESIUM OXIDE
     Indication: PRODUCT USED FOR UNKNOWN INDICATION
     Dosage: 150 MG, QD (1-0-0-0, KAPSELN)
     Route: 048
  11. KORTISON [Concomitant]
     Active Substance: CORTISONE ACETATE
     Indication: PRODUCT USED FOR UNKNOWN INDICATION
     Dosage: UNK (BEDARF, SALBE)
     Route: 062
  12. ADENURIC [Concomitant]
     Active Substance: FEBUXOSTAT
     Indication: PRODUCT USED FOR UNKNOWN INDICATION
     Dosage: 80 MG, QD (1-0-0-0, TABLETTEN)
     Route: 048
  13. VERSATIS [Concomitant]
     Active Substance: LIDOCAINE
     Indication: PRODUCT USED FOR UNKNOWN INDICATION
     Dosage: 700 MG, UNK (PFLASTER TRANSDERMAL)
     Route: 062
  14. OSTEOTRIOL [Concomitant]
     Indication: PRODUCT USED FOR UNKNOWN INDICATION
     Dosage: 0.25 UG, QD (0-1-0-0, TABLETTEN)
     Route: 048
  15. KALINOR-RETARD P [Concomitant]
     Indication: PRODUCT USED FOR UNKNOWN INDICATION
     Dosage: 600 MG, BID (1-0-1-0, KAPSELN)
     Route: 048
  16. BISOPROLOL [Concomitant]
     Active Substance: BISOPROLOL
     Indication: PRODUCT USED FOR UNKNOWN INDICATION
     Dosage: 5 MG, QD (0-0-1-0, TABLETTEN)
     Route: 048
  17. CIPROFLOXACIN. [Concomitant]
     Active Substance: CIPROFLOXACIN
     Indication: PRODUCT USED FOR UNKNOWN INDICATION
     Dosage: 250 MG, UNK (SCHEMA, TABLETTEN)
     Route: 048
  18. D3-VICOTRAT [Concomitant]
     Indication: PRODUCT USED FOR UNKNOWN INDICATION
     Dosage: UNK (SCHEMA, INJEKTIONS-/INFUSIONSL?SUNG)
     Route: 030
  19. PREDNISOLONE. [Suspect]
     Active Substance: PREDNISOLONE
     Indication: PRODUCT USED FOR UNKNOWN INDICATION
     Dosage: 7.5 MG, QD (1-0-0-0, TABLETTEN)
     Route: 048
  20. AMITRIPTYLIN [Concomitant]
     Active Substance: AMITRIPTYLINE
     Indication: PRODUCT USED FOR UNKNOWN INDICATION
     Dosage: 25 MG, QD (0-0-1-0, TABLETTEN)
     Route: 048
  21. PANTOPRAZOL [Concomitant]
     Active Substance: PANTOPRAZOLE SODIUM
     Indication: PRODUCT USED FOR UNKNOWN INDICATION
     Dosage: 40 MG, BID (1-0-1-0, TABLETTEN)
     Route: 048
  22. ZINC. [Concomitant]
     Active Substance: ZINC
     Indication: PRODUCT USED FOR UNKNOWN INDICATION
     Dosage: UNK UNK, QD (1-0-0-0, KAPSELN)
     Route: 048

REACTIONS (3)
  - Musculoskeletal pain [Unknown]
  - Hypertension [Unknown]
  - Pyrexia [Unknown]
